FAERS Safety Report 13681171 (Version 1)
Quarter: 2017Q2

REPORT INFORMATION
  Report Type: Report from Study
  Country: GB (occurrence: GB)
  Receive Date: 20170623
  Receipt Date: 20170623
  Transmission Date: 20170830
  Serious: Yes (Death)
  Sender: FDA-Public Use
  Company Number: GB-CIPLA LTD.-2017GB11076

PATIENT

DRUGS (6)
  1. EPIRUBICIN [Suspect]
     Active Substance: EPIRUBICIN
     Indication: BREAST CANCER
     Dosage: 75 MG/M2, VIA 3 TO 5 MIN IV BOLUS OR 30 MIN INTRAVENOUS INFUSION ON DAY 1 OF CYCLES 5 TO 8
     Route: 065
  2. DOCETAXEL. [Suspect]
     Active Substance: DOCETAXEL
     Indication: BREAST CANCER
     Dosage: 75 MG/M2, ADMINISTERED IMMEDIATELY VIA A 1 H INTRAVENOUS INFUSION ON DAY 1 OF CYCLES 1 TO 4
     Route: 042
  3. CYCLOPHOSPHAMIDE. [Suspect]
     Active Substance: CYCLOPHOSPHAMIDE
     Indication: BREAST CANCER
     Dosage: 500 MG/M2, VIA 3 TO 5 MIN IV BOLUS ON DAY 1 OF CYCLES 5 TO 8
     Route: 040
  4. TRASTUZUMAB [Suspect]
     Active Substance: TRASTUZUMAB
     Dosage: 6 MG/KG, ON DAY 1 OF CYCLES 2 TO 8 WITH DOSING OCCURRING EVERY 3 WEEKS FOR 24 WEEKS, 90 MIN INFUSION
     Route: 042
  5. FLUOROURACIL. [Suspect]
     Active Substance: FLUOROURACIL
     Indication: BREAST CANCER
     Dosage: 500 MG/M2, VIA 3 TO 5 MIN IV BOLUS OR 30 MIN INTRAVENOUS INFUSION ON DAY 1 OF CYCLES 5 TO 8
     Route: 065
  6. TRASTUZUMAB [Suspect]
     Active Substance: TRASTUZUMAB
     Indication: BREAST CANCER
     Dosage: 8 MG/KG, DAY 1 OF CYCLE 1 VIA A 90 MIN INFUSION
     Route: 042

REACTIONS (1)
  - Acute myocardial infarction [Fatal]
